FAERS Safety Report 4406821-3 (Version None)
Quarter: 2004Q3

REPORT INFORMATION
  Report Type: 
  Country: None (occurrence: None)
  Receive Date: 20040715
  Receipt Date: 20040702
  Transmission Date: 20050211
  Serious: Yes (Hospitalization, Other)
  Sender: FDA-Public Use
  Company Number: JP-JNJFOC-20040104295

PATIENT
  Age: 71 Year
  Sex: Female
  Weight: 50 kg

DRUGS (14)
  1. REMICADE [Suspect]
     Indication: RHEUMATOID ARTHRITIS
     Dosage: 3 MG. KG, 1 IN 1 AS NECESSARY, INTRAVENOUS DRIP
     Route: 041
     Dates: start: 20031217, end: 20031217
  2. REMICADE [Suspect]
     Indication: RHEUMATOID ARTHRITIS
     Dosage: 3 MG. KG, 1 IN 1 AS NECESSARY, INTRAVENOUS DRIP
     Route: 041
     Dates: start: 20031104
  3. REMICADE [Suspect]
     Indication: RHEUMATOID ARTHRITIS
     Dosage: 3 MG. KG, 1 IN 1 AS NECESSARY, INTRAVENOUS DRIP
     Route: 041
     Dates: start: 20031118
  4. RHEUMATREX [Suspect]
     Indication: RHEUMATOID ARTHRITIS
     Dosage: 4 MG, 6 MG,  IN 1 WEEK, 1 IN 1 WEEK, ORAL
     Route: 048
     Dates: start: 20020509, end: 20030414
  5. RHEUMATREX [Suspect]
     Indication: RHEUMATOID ARTHRITIS
     Dosage: 4 MG, 6 MG,  IN 1 WEEK, 1 IN 1 WEEK, ORAL
     Route: 048
     Dates: start: 20030415, end: 20040514
  6. RHEUMATREX [Suspect]
     Indication: RHEUMATOID ARTHRITIS
     Dosage: 4 MG, 6 MG,  IN 1 WEEK, 1 IN 1 WEEK, ORAL
     Route: 048
     Dates: start: 20020527
  7. RIMATIL (BUCILLAMINE TABLETS) [Concomitant]
  8. INFREE (INDOMETACIN) CAPSULES [Concomitant]
  9. FOLIAMIN (FOLIC ACID) TABLETS [Concomitant]
  10. ZANTAC (RANITIDINE HYDROCHLORIDE) TABLETS [Concomitant]
  11. MAGNESIUM OXIDE (DICLOFENAC SODIUM) SUPPOSITORY [Concomitant]
  12. MOHRUS (KETOPROFEN) PATCH [Concomitant]
  13. PEON (ZALTOPROFEN) [Concomitant]
  14. HALCION [Concomitant]

REACTIONS (12)
  - ALANINE AMINOTRANSFERASE INCREASED [None]
  - ALBUMIN GLOBULIN RATIO DECREASED [None]
  - ASPARTATE AMINOTRANSFERASE INCREASED [None]
  - BLOOD ALBUMIN DECREASED [None]
  - BLOOD CHOLESTEROL INCREASED [None]
  - BLOOD LACTATE DEHYDROGENASE INCREASED [None]
  - BRONCHIOLITIS [None]
  - CELLULITIS [None]
  - IMMUNODEFICIENCY [None]
  - INFECTION [None]
  - TUBERCULOSIS [None]
  - WHITE BLOOD CELL COUNT DECREASED [None]
